FAERS Safety Report 8648209 (Version 2)
Quarter: 2014Q1

REPORT INFORMATION
  Report Type: Spontaneous
  Country: US (occurrence: None)
  Receive Date: 20120323
  Receipt Date: 20130305
  Transmission Date: 20141002
  Serious: Yes (Hospitalization)
  Sender: FDA-Public Use
  Company Number: 163-21880-11111115

PATIENT
  Age: 79 Year
  Sex: Female

DRUGS (6)
  1. REVLIMID (LENALIDOMIDE) (CAPSULES) [Suspect]
     Indication: MYELODYSPLASTIC SYNDROME
     Dosage: 10 MG, 1 IN 1 D, PO; 5 MG, 1 IN 1 D, PO
     Route: 048
     Dates: start: 20110819, end: 2011
  2. BYETTA (EXENATIDE) [Concomitant]
  3. GLIMEPIRIDE [Concomitant]
  4. METFORMIN [Concomitant]
  5. LOTENSIN (BENAZEPRIL HYDROCHLORIDE) [Concomitant]
  6. ENABLEX (DARIFENACIN HYDROBROMIDE) [Concomitant]

REACTIONS (1)
  - Pancytopenia [None]
